FAERS Safety Report 4281326-1 (Version None)
Quarter: 2004Q1

REPORT INFORMATION
  Report Type: 
  Country: None (occurrence: None)
  Receive Date: 20040129
  Receipt Date: 20031105
  Transmission Date: 20041129
  Serious: Yes (Death, Hospitalization)
  Sender: FDA-Public Use
  Company Number: DE-ROCHE-350761

PATIENT
  Age: 61 Year
  Sex: Male
  Weight: 68 kg

DRUGS (4)
  1. CAPECITABINE [Suspect]
     Dosage: ON DAYS 1-14 OF A 21 DAY CYCLE.
     Route: 048
     Dates: start: 20031013, end: 20031020
  2. GEMCITABINE [Suspect]
     Dosage: ON DAYS 1 AND 8 OF A 21 DAY CYCLE.
     Route: 042
     Dates: start: 20031013, end: 20031020
  3. DECORTIN [Concomitant]
  4. RANITIDINE [Concomitant]

REACTIONS (2)
  - BILE DUCT OBSTRUCTION [None]
  - DEATH [None]
